FAERS Safety Report 14088483 (Version 2)
Quarter: 2017Q4

REPORT INFORMATION
  Report Type: Report from Study
  Country: None (occurrence: FR)
  Receive Date: 20171013
  Receipt Date: 20171020
  Transmission Date: 20180321
  Serious: Yes (Other)
  Sender: FDA-Public Use
  Company Number: US-ABBVIE-17P-056-2126678-00

PATIENT
  Sex: Female

DRUGS (3)
  1. REYATAZ [Suspect]
     Active Substance: ATAZANAVIR SULFATE
     Indication: HIV INFECTION
     Dosage: 1 COURSE STARTED PRIOR TO CONCEPTION- EARLIEST EXPOSRE FIRST TRIMESTER
     Route: 065
     Dates: start: 20121019, end: 20130402
  2. TENOFOVIR DISOPROXIL FUMARATE+EMTRICITABINE [Suspect]
     Active Substance: EMTRICITABINE\TENOFOVIR DISOPROXIL FUMARATE
     Indication: HIV INFECTION
     Dosage: 1 COURSE STARTED PRIOR TO CONCEPTION- EARLIEST EXPOSRE FIRST TRIMESTER
     Route: 065
     Dates: start: 20121019, end: 20130402
  3. RITONAVIR. [Suspect]
     Active Substance: RITONAVIR
     Indication: HIV INFECTION
     Dosage: 1 COURSE STARTED PRIOR TO CONCEPTION- EARLIEST EXPOSURE FIRST TRIMESTER
     Route: 065
     Dates: start: 20121019, end: 20130402

REACTIONS (3)
  - Foetal death [Unknown]
  - Exposure during pregnancy [Unknown]
  - Abortion induced [Unknown]

NARRATIVE: CASE EVENT DATE: 20121019
